FAERS Safety Report 21707259 (Version 1)
Quarter: 2022Q4

REPORT INFORMATION
  Report Type: Spontaneous
  Country: US (occurrence: None)
  Receive Date: 20221209
  Receipt Date: 20221209
  Transmission Date: 20230113
  Serious: Yes (Hospitalization)
  Sender: FDA-Public Use
  Company Number: 2022A397298

PATIENT
  Sex: Female

DRUGS (2)
  1. FARXIGA [Suspect]
     Active Substance: DAPAGLIFLOZIN PROPANEDIOL
     Indication: Type 2 diabetes mellitus
     Route: 048
  2. DRAMAMINE [Concomitant]
     Active Substance: DIMENHYDRINATE

REACTIONS (4)
  - Dehydration [Unknown]
  - Dizziness [Unknown]
  - Vomiting [Unknown]
  - Vertigo [Unknown]
